FAERS Safety Report 11388328 (Version 1)
Quarter: 2015Q3

REPORT INFORMATION
  Report Type: Report from Study
  Country: AR (occurrence: AR)
  Receive Date: 20150817
  Receipt Date: 20150817
  Transmission Date: 20151125
  Serious: Yes (Hospitalization)
  Sender: FDA-Public Use
  Company Number: PHHY2015AR097840

PATIENT
  Sex: Female

DRUGS (1)
  1. DIOVAN [Suspect]
     Active Substance: VALSARTAN
     Indication: HYPERTENSION
     Dosage: 160 OT, QD
     Route: 065

REACTIONS (5)
  - Blood potassium increased [Unknown]
  - Bronchitis [Unknown]
  - Arrhythmia [Unknown]
  - Secretion discharge [Unknown]
  - Urinary tract infection [Unknown]
